FAERS Safety Report 23133314 (Version 1)
Quarter: 2023Q4

REPORT INFORMATION
  Report Type: Spontaneous
  Country: US (occurrence: US)
  Receive Date: 20231101
  Receipt Date: 20231101
  Transmission Date: 20240110
  Serious: No
  Sender: FDA-Public Use
  Company Number: US-GILEAD-2023-0649326

PATIENT
  Age: 47 Year
  Sex: Male

DRUGS (22)
  1. BIKTARVY [Suspect]
     Active Substance: BICTEGRAVIR SODIUM\EMTRICITABINE\TENOFOVIR ALAFENAMIDE FUMARATE
     Indication: HIV infection
     Dosage: 50-200-25MG, QD
     Route: 048
     Dates: start: 20180401, end: 20190925
  2. MELOXICAM [Concomitant]
     Active Substance: MELOXICAM
  3. NYSTATIN [Concomitant]
     Active Substance: NYSTATIN
  4. SAPHRIS [Concomitant]
     Active Substance: ASENAPINE MALEATE
  5. FENOFIBRATE [Concomitant]
     Active Substance: FENOFIBRATE
  6. ATORVASTATIN [Concomitant]
     Active Substance: ATORVASTATIN
  7. METOPROLOL SUCCINATE [Concomitant]
     Active Substance: METOPROLOL SUCCINATE
  8. SILDENAFIL [Concomitant]
     Active Substance: SILDENAFIL
  9. PANTOPRAZOLE [Concomitant]
     Active Substance: PANTOPRAZOLE
  10. ESCITALOPRAM [Concomitant]
     Active Substance: ESCITALOPRAM OXALATE
  11. BUPROPION [Concomitant]
     Active Substance: BUPROPION
  12. BUSPIRONE [Concomitant]
     Active Substance: BUSPIRONE HYDROCHLORIDE
  13. HYDROXYZINE [Concomitant]
     Active Substance: HYDROXYZINE HYDROCHLORIDE
  14. VRAYLAR [Concomitant]
     Active Substance: CARIPRAZINE
  15. MIRALAX [Concomitant]
     Active Substance: POLYETHYLENE GLYCOL 3350
  16. VENTOLIN [Concomitant]
     Active Substance: ALBUTEROL SULFATE
  17. KETOCONAZOLE [Concomitant]
     Active Substance: KETOCONAZOLE
  18. CLOBETASOL [Concomitant]
     Active Substance: CLOBETASOL
  19. MONTELUKAST [Concomitant]
     Active Substance: MONTELUKAST SODIUM
  20. VITAMIN D3 [Concomitant]
     Active Substance: CHOLECALCIFEROL
  21. IMODIUM [Concomitant]
     Active Substance: LOPERAMIDE HYDROCHLORIDE
  22. PEPTO-BISMOL [Concomitant]
     Active Substance: BISMUTH SUBSALICYLATE

REACTIONS (1)
  - Weight increased [Unknown]

NARRATIVE: CASE EVENT DATE: 20190925
